FAERS Safety Report 9202403 (Version 1)
Quarter: 2013Q2

REPORT INFORMATION
  Report Type: Report from Study
  Country: VE (occurrence: VE)
  Receive Date: 20130401
  Receipt Date: 20130401
  Transmission Date: 20140414
  Serious: Yes (Hospitalization, Other)
  Sender: FDA-Public Use
  Company Number: VE-ABBOTT-13P-178-1068962-00

PATIENT
  Age: 38 Year
  Sex: Female
  Weight: 95 kg

DRUGS (6)
  1. HUMIRA [Suspect]
     Indication: RHEUMATOID ARTHRITIS
     Route: 058
     Dates: start: 20120813, end: 201210
  2. OMEPRAZOLE [Concomitant]
     Indication: GASTRIC DISORDER
     Route: 048
  3. OMEPRAZOLE [Concomitant]
     Indication: PROPHYLAXIS
  4. LYRICA [Concomitant]
     Indication: RHEUMATOID ARTHRITIS
     Route: 048
  5. METHOTREXATE [Concomitant]
     Indication: RHEUMATOID ARTHRITIS
     Route: 048
     Dates: start: 2010
  6. ARAVA [Concomitant]
     Indication: RHEUMATOID ARTHRITIS
     Dosage: OD
     Route: 048
     Dates: start: 201212

REACTIONS (5)
  - Tuberculin test positive [Unknown]
  - Rheumatoid arthritis [Recovered/Resolved]
  - Hypersensitivity [Unknown]
  - Dyspnoea [Unknown]
  - Myofascial pain syndrome [Unknown]
